FAERS Safety Report 5017608-5 (Version None)
Quarter: 2006Q2

REPORT INFORMATION
  Report Type: 
  Country: None (occurrence: None)
  Receive Date: 20060525
  Receipt Date: 20060515
  Transmission Date: 20061013
  Serious: Yes (Hospitalization)
  Sender: FDA-Public Use
  Company Number: 2006BI007048

PATIENT
  Age: 48 Year
  Sex: Female
  Weight: 56.6996 kg

DRUGS (2)
  1. AVONEX [Suspect]
     Indication: MULTIPLE SCLEROSIS
     Dosage: 30 UG;QW;IM
     Route: 030
     Dates: start: 20020101, end: 20030801
  2. AVONEX [Suspect]
     Indication: MULTIPLE SCLEROSIS
     Dosage: 30 UG;QW;IM
     Route: 030
     Dates: start: 20030801

REACTIONS (9)
  - ASTHENIA [None]
  - CONFUSIONAL STATE [None]
  - COORDINATION ABNORMAL [None]
  - DIFFICULTY IN WALKING [None]
  - INFLUENZA LIKE ILLNESS [None]
  - INTERVERTEBRAL DISC DISORDER [None]
  - MUSCULAR WEAKNESS [None]
  - PROCEDURAL PAIN [None]
  - PYREXIA [None]
